FAERS Safety Report 22374094 (Version 1)
Quarter: 2023Q2

REPORT INFORMATION
  Report Type: Spontaneous
  Country: HU (occurrence: HU)
  Receive Date: 20230526
  Receipt Date: 20230526
  Transmission Date: 20230721
  Serious: Yes (Other)
  Sender: FDA-Public Use
  Company Number: HU-JNJFOC-20230533659

PATIENT
  Age: 31 Year
  Sex: Female

DRUGS (4)
  1. TOPAMAX [Suspect]
     Active Substance: TOPIRAMATE
     Indication: Epilepsy
     Dosage: 125 IN THE MORNING AND 150 IN THE EVENING?STARTED IN 2002- 2003
     Route: 048
  2. LAMICTAL [Concomitant]
     Active Substance: LAMOTRIGINE
  3. CLOBAZAM [Concomitant]
     Active Substance: CLOBAZAM
  4. BRAVADIN [Concomitant]

REACTIONS (6)
  - Syncope [Unknown]
  - Fall [Unknown]
  - Skin laceration [Unknown]
  - Urticaria [Unknown]
  - Eye swelling [Unknown]
  - Mouth swelling [Unknown]

NARRATIVE: CASE EVENT DATE: 20230201
